FAERS Safety Report 7144878-X (Version None)
Quarter: 2010Q4

REPORT INFORMATION
  Report Type: 
  Country: None (occurrence: None)
  Receive Date: 20101208
  Receipt Date: 20101130
  Transmission Date: 20110411
  Serious: Yes (Other)
  Sender: FDA-Public Use
  Company Number: US-US-EMD SERONO, INC.-7027474

PATIENT
  Sex: Female

DRUGS (3)
  1. REBIF [Suspect]
     Indication: PRODUCT USED FOR UNKNOWN INDICATION
     Route: 058
     Dates: start: 20101026
  2. LYRICA [Concomitant]
     Dates: start: 20100701
  3. INTRAUTERINE DEVICE [Concomitant]
     Indication: CONTRACEPTION
     Dates: start: 20091201

REACTIONS (4)
  - INJECTION SITE HAEMATOMA [None]
  - INJECTION SITE PAIN [None]
  - IRON DEFICIENCY [None]
  - MENORRHAGIA [None]
